FAERS Safety Report 6943631-7 (Version None)
Quarter: 2010Q3

REPORT INFORMATION
  Report Type: 
  Country: None (occurrence: None)
  Receive Date: 20100826
  Receipt Date: 20100819
  Transmission Date: 20110219
  Serious: Yes (Hospitalization)
  Sender: FDA-Public Use
  Company Number: PHHO2010US11000

PATIENT
  Sex: Female

DRUGS (14)
  1. ZOLEDRONATE T29581+ [Suspect]
     Indication: MULTIPLE MYELOMA
     Dosage: 4MG
     Route: 042
     Dates: start: 20081208
  2. ESTER-C [Concomitant]
  3. CALCIUM [Concomitant]
  4. VITAMIN D [Concomitant]
  5. VENTOLIN [Concomitant]
  6. NEURONTIN [Concomitant]
  7. OXY [Concomitant]
  8. ATIVAN [Concomitant]
  9. TOPRAL [Concomitant]
  10. LEXAPRO [Concomitant]
  11. PRILOSEC [Concomitant]
  12. ACETAMINOPHEN [Concomitant]
  13. BENIDIPINE [Concomitant]
  14. VELCADE [Concomitant]

REACTIONS (6)
  - APHASIA [None]
  - BALANCE DISORDER [None]
  - CONFUSIONAL STATE [None]
  - DISSOCIATION [None]
  - THINKING ABNORMAL [None]
  - VISION BLURRED [None]
